FAERS Safety Report 7395105-X (Version None)
Quarter: 2011Q2

REPORT INFORMATION
  Report Type: 
  Country: None (occurrence: None)
  Receive Date: 20110405
  Receipt Date: 20110331
  Transmission Date: 20111010
  Serious: Yes (Death, Other)
  Sender: FDA-Public Use
  Company Number: JP-ROXANE LABORATORIES, INC.-2011-RO-00439RO

PATIENT
  Age: 49 Year
  Sex: Female

DRUGS (7)
  1. KETAMINE HCL [Suspect]
     Indication: CANCER PAIN
     Dosage: 15 MG
     Route: 037
  2. BUPIVACAINE HCL [Suspect]
     Indication: CANCER PAIN
     Route: 037
  3. FENTANYL [Suspect]
     Indication: CANCER PAIN
  4. MORPHINE [Suspect]
     Dosage: 1 MG
     Route: 037
  5. MORPHINE [Suspect]
     Indication: CANCER PAIN
     Route: 042
  6. MORPHINE [Suspect]
     Route: 037
  7. FENTANYL [Suspect]
     Indication: NAUSEA
     Route: 062

REACTIONS (5)
  - DEATH [None]
  - VOMITING [None]
  - SOMNOLENCE [None]
  - NAUSEA [None]
  - DRUG INEFFECTIVE [None]
